FAERS Safety Report 10354310 (Version 1)
Quarter: 2014Q3

REPORT INFORMATION
  Report Type: Spontaneous
  Country: US (occurrence: US)
  Receive Date: 20140731
  Receipt Date: 20140731
  Transmission Date: 20150326
  Serious: No
  Sender: FDA-Public Use
  Company Number: US-GLAXOSMITHKLINE-A1068092A

PATIENT
  Age: 88 Year
  Sex: Male

DRUGS (3)
  1. DYAZIDE [Suspect]
     Active Substance: HYDROCHLOROTHIAZIDE\TRIAMTERENE
     Indication: LOCAL SWELLING
     Dosage: 1CAP PER DAY
     Route: 048
     Dates: end: 20140331
  2. BABY ASPIRIN [Concomitant]
     Active Substance: ASPIRIN
  3. CALAN [Concomitant]
     Active Substance: VERAPAMIL HYDROCHLORIDE

REACTIONS (3)
  - Dizziness [Unknown]
  - Blood urea increased [Unknown]
  - Blood creatinine increased [Unknown]

NARRATIVE: CASE EVENT DATE: 20140327
